FAERS Safety Report 7681750-0 (Version None)
Quarter: 2011Q3

REPORT INFORMATION
  Report Type: 
  Country: None (occurrence: None)
  Receive Date: 20110812
  Receipt Date: 20110804
  Transmission Date: 20111222
  Serious: Yes (Hospitalization)
  Sender: FDA-Public Use
  Company Number: PHHY2011GB71241

PATIENT
  Age: 67 Year
  Sex: Female

DRUGS (6)
  1. VERAPAMIL [Concomitant]
  2. FUROSEMIDE [Concomitant]
  3. FLECAINIDE ACETATE [Suspect]
     Indication: ATRIAL FIBRILLATION
  4. VALPROATE SODIUM [Concomitant]
  5. ASPIRIN [Concomitant]
  6. LARGE GINS WITH TONIC WATER [Interacting]
     Dosage: UNK

REACTIONS (4)
  - ELECTROCARDIOGRAM QT PROLONGED [None]
  - DRUG INTERACTION [None]
  - TORSADE DE POINTES [None]
  - DEPRESSED LEVEL OF CONSCIOUSNESS [None]
